FAERS Safety Report 9701455 (Version 2)
Quarter: 2013Q4

REPORT INFORMATION
  Report Type: Spontaneous
  Country: US (occurrence: US)
  Receive Date: 20131121
  Receipt Date: 20131121
  Transmission Date: 20140711
  Serious: No
  Sender: FDA-Public Use
  Company Number: US-GILEAD-2008-0015806

PATIENT
  Sex: Female
  Weight: 67.81 kg

DRUGS (6)
  1. LETAIRIS [Suspect]
     Indication: PULMONARY ARTERIAL HYPERTENSION
     Route: 048
     Dates: start: 20080126, end: 20080318
  2. XANAX [Concomitant]
     Dosage: PRN
     Route: 048
  3. TYLENOL PM EX-STR [Concomitant]
     Dosage: HS
     Route: 048
  4. SYNTHROID [Concomitant]
     Route: 048
  5. TRAZODONE [Concomitant]
     Dosage: HS
     Route: 048
  6. ACIPHEX [Concomitant]
     Route: 048

REACTIONS (2)
  - Blood bilirubin increased [Unknown]
  - Liver function test abnormal [Unknown]
